FAERS Safety Report 7402586-1 (Version None)
Quarter: 2011Q2

REPORT INFORMATION
  Report Type: 
  Country: None (occurrence: None)
  Receive Date: 20110408
  Receipt Date: 20110404
  Transmission Date: 20111010
  Serious: Yes (Hospitalization, Other)
  Sender: FDA-Public Use
  Company Number: US-TEVA-274652USA

PATIENT
  Age: 54 Year
  Sex: Female

DRUGS (6)
  1. RITUXIMAB [Concomitant]
     Indication: CHEMOTHERAPY
  2. ETOPOSIDE [Concomitant]
     Indication: CHEMOTHERAPY
  3. CYTARABINE [Concomitant]
     Indication: CHEMOTHERAPY
  4. CISPLATIN [Concomitant]
     Indication: CHEMOTHERAPY
  5. METHOTREXATE SOLUTION FOR INJECTION, 25 MG/ML [Suspect]
     Route: 037
  6. METHYLPREDNISOLONE (R-ESHAP) [Concomitant]
     Indication: CHEMOTHERAPY

REACTIONS (2)
  - BRAIN OEDEMA [None]
  - TUMOUR LYSIS SYNDROME [None]
